FAERS Safety Report 23170519 (Version 1)
Quarter: 2023Q4

REPORT INFORMATION
  Report Type: Spontaneous
  Country: US (occurrence: None)
  Receive Date: 20231109
  Receipt Date: 20231109
  Transmission Date: 20240109
  Serious: No
  Sender: FDA-Public Use
  Company Number: None

PATIENT
  Sex: 0

DRUGS (2)
  1. PAXLOVID [Suspect]
     Active Substance: NIRMATRELVIR\RITONAVIR
  2. PARLODEL [Suspect]
     Active Substance: BROMOCRIPTINE MESYLATE

REACTIONS (4)
  - COVID-19 [None]
  - Therapy interrupted [None]
  - Vomiting [None]
  - Drug interaction [None]

NARRATIVE: CASE EVENT DATE: 20231001
